FAERS Safety Report 5807512-4 (Version None)
Quarter: 2008Q3

REPORT INFORMATION
  Report Type: 
  Country: None (occurrence: None)
  Receive Date: 20080709
  Receipt Date: 20080709
  Transmission Date: 20090109
  Serious: Yes (Hospitalization)
  Sender: FDA-Public Use
  Company Number: None

PATIENT
  Age: 68 Year
  Sex: Male

DRUGS (2)
  1. FUROSEMIDE [Suspect]
     Indication: CARDIAC FAILURE CHRONIC
     Dosage: 20 MG EVERY DAY PO
     Route: 048
     Dates: start: 20060301, end: 20080708
  2. ATENOLOL [Suspect]
     Indication: CARDIAC OPERATION
     Dosage: 12.5 MG EVERY DAY PO
     Route: 048
     Dates: start: 20061208, end: 20080708

REACTIONS (2)
  - HYPOKALAEMIA [None]
  - HYPOTENSION [None]
